FAERS Safety Report 4743860-7 (Version None)
Quarter: 2005Q3

REPORT INFORMATION
  Report Type: 
  Country: None (occurrence: None)
  Receive Date: 20050812
  Receipt Date: 20050324
  Transmission Date: 20060218
  Serious: Yes (Hospitalization, Disabling)
  Sender: FDA-Public Use
  Company Number: US-MERCK-0503USA04557

PATIENT
  Age: 67 Year
  Sex: Male
  Weight: 100 kg

DRUGS (6)
  1. VIOXX [Suspect]
     Indication: SHOULDER PAIN
     Route: 048
     Dates: start: 20000101, end: 20031201
  2. VIOXX [Suspect]
     Route: 048
     Dates: start: 20000101, end: 20031201
  3. VIOXX [Suspect]
     Indication: INFLAMMATION
     Route: 048
     Dates: start: 20000101, end: 20031201
  4. VIOXX [Suspect]
     Route: 048
     Dates: start: 20000101, end: 20031201
  5. TYLENOL (CAPLET) [Concomitant]
     Route: 065
  6. KEFLEX [Concomitant]
     Route: 065

REACTIONS (15)
  - ARTHROPATHY [None]
  - BACK PAIN [None]
  - BLOOD CHOLESTEROL INCREASED [None]
  - BLOOD TRIGLYCERIDES INCREASED [None]
  - CARDIOVASCULAR DISORDER [None]
  - CEREBROVASCULAR ACCIDENT [None]
  - GASTROINTESTINAL DISORDER [None]
  - INFECTION [None]
  - JOINT ABSCESS [None]
  - PAIN [None]
  - PARALYSIS [None]
  - PROSTATIC DISORDER [None]
  - SCIATICA [None]
  - SPINAL CORD INJURY [None]
  - URINARY TRACT DISORDER [None]
